FAERS Safety Report 14328508 (Version 1)
Quarter: 2017Q4

REPORT INFORMATION
  Report Type: Spontaneous
  Country: US (occurrence: US)
  Receive Date: 20171227
  Receipt Date: 20171227
  Transmission Date: 20180321
  Serious: Yes (Other)
  Sender: FDA-Public Use
  Company Number: US-STANDARD HOMEOPATHIC COMPANY-2037823

PATIENT
  Age: 54 Year
  Sex: Female

DRUGS (2)
  1. HYLANDS LEG CRAMPS [Suspect]
     Active Substance: HOMEOPATHICS
     Indication: PAIN IN EXTREMITY
     Route: 048
     Dates: start: 201711, end: 201712
  2. HYLANDS LEG CRAMPS [Suspect]
     Active Substance: HOMEOPATHICS
     Indication: MUSCULOSKELETAL STIFFNESS
     Route: 048
     Dates: start: 201711, end: 201712

REACTIONS (1)
  - Thrombocytopenia [Unknown]

NARRATIVE: CASE EVENT DATE: 20171215
